FAERS Safety Report 6753553-2 (Version None)
Quarter: 2010Q2

REPORT INFORMATION
  Report Type: 
  Country: None (occurrence: None)
  Receive Date: 20100528
  Receipt Date: 20100521
  Transmission Date: 20101027
  Serious: Yes (Death, Hospitalization)
  Sender: FDA-Public Use
  Company Number: 2010JP001654

PATIENT
  Age: 63 Year
  Sex: Male
  Weight: 72 kg

DRUGS (11)
  1. TACROLIMUS [Suspect]
     Indication: INTERSTITIAL LUNG DISEASE
     Dosage: 4 MG,/D, ORAL
     Route: 048
     Dates: start: 20081219
  2. PROGRAF [Suspect]
     Indication: DERMATOMYOSITIS
     Dosage: 0.5 MG, BID, ORAL
     Route: 048
     Dates: start: 20100220, end: 20100303
  3. PREDNISOLONE [Concomitant]
  4. PREDNISOLONE [Concomitant]
  5. PREDNISOLONE [Concomitant]
  6. RABEPRAZOLE SODIUM [Concomitant]
  7. MAGLAX (MAGNESIUM OXIDE) [Concomitant]
  8. ALOSENN (ACHILLEA MILLEFOLIUM, RUBA TINTORUM ROOT TINCTURE, SENNA ALEX [Concomitant]
  9. PRAVASTATIN [Concomitant]
  10. NATEGLINIDE [Concomitant]
  11. BONALON (ALENDRONIC ACID) [Concomitant]

REACTIONS (8)
  - BLOOD CREATININE INCREASED [None]
  - BRONCHOPNEUMONIA [None]
  - CONDITION AGGRAVATED [None]
  - DISEASE COMPLICATION [None]
  - INTERSTITIAL LUNG DISEASE [None]
  - NO THERAPEUTIC RESPONSE [None]
  - PNEUMONIA BACTERIAL [None]
  - RESPIRATORY FAILURE [None]
